FAERS Safety Report 4560473-0 (Version None)
Quarter: 2005Q1

REPORT INFORMATION
  Report Type: 
  Country: None (occurrence: None)
  Receive Date: 20050125
  Receipt Date: 20041011
  Transmission Date: 20050727
  Serious: Yes (Life-Threatening, Hospitalization, Disabling)
  Sender: FDA-Public Use
  Company Number: DE-MERCK-0410DEU00304

PATIENT
  Age: 59 Year
  Sex: Male

DRUGS (4)
  1. VIOXX [Suspect]
     Indication: OSTEOARTHRITIS
     Route: 048
     Dates: start: 20011004, end: 20030101
  2. VIOXX [Suspect]
     Indication: CAUDA EQUINA SYNDROME
     Route: 048
     Dates: start: 20011004, end: 20030101
  3. PANTOPRAZOLE SODIUM [Concomitant]
     Indication: GASTROOESOPHAGEAL REFLUX DISEASE
     Route: 048
     Dates: start: 20011001
  4. PANTOPRAZOLE SODIUM [Concomitant]
     Indication: DUODENAL ULCER
     Route: 048
     Dates: start: 20011001

REACTIONS (1)
  - MYOCARDIAL INFARCTION [None]
